FAERS Safety Report 7737949-8 (Version None)
Quarter: 2011Q3

REPORT INFORMATION
  Report Type: 
  Country: None (occurrence: None)
  Receive Date: 20110908
  Receipt Date: 20110906
  Transmission Date: 20111222
  Serious: Yes (Congenital Anomaly, Other)
  Sender: FDA-Public Use
  Company Number: GXKR2011DE02741

PATIENT
  Sex: Male
  Weight: 3.3 kg

DRUGS (5)
  1. MIRTAZAPINE [Suspect]
     Dosage: MATERNAL DOSE: 15 MG/DAY; GW 0-10.1 AND GW 13.1-38.6
     Route: 064
  2. FOLIC ACID [Concomitant]
     Dosage: MATERNAL DOSE: 0.4-0.8 MG/DAY; GW 0-19
     Route: 064
  3. ACETAMINOPHEN [Concomitant]
     Dosage: MATERNAL DOSE: 500 MG/DAY; GW 18.6-19.1
     Route: 064
  4. COTRIM [Concomitant]
     Dosage: GW 1.3-2.1
     Route: 064
  5. XYLOMETAZOLINE [Concomitant]
     Dosage: GW 18.6-19.1
     Route: 064

REACTIONS (2)
  - HYPOSPADIAS [None]
  - MATERNAL EXPOSURE DURING PREGNANCY [None]
